FAERS Safety Report 9869425 (Version 2)
Quarter: 2014Q1

REPORT INFORMATION
  Report Type: Report from Study
  Country: IT (occurrence: IT)
  Receive Date: 20140205
  Receipt Date: 20140326
  Transmission Date: 20141002
  Serious: Yes (Disabling)
  Sender: FDA-Public Use
  Company Number: IT-ROCHE-1344783

PATIENT
  Sex: Male
  Weight: 4.17 kg

DRUGS (7)
  1. ALTEPLASE [Suspect]
     Indication: PERIPHERAL ARTERY THROMBOSIS
     Route: 065
  2. ALTEPLASE [Suspect]
     Indication: PERIPHERAL ISCHAEMIA
     Dosage: 0.3 MG/KG/H
     Route: 065
  3. UNFRACTIONATED HEPARIN [Suspect]
     Indication: PERIPHERAL ARTERY THROMBOSIS
     Route: 065
  4. UNFRACTIONATED HEPARIN [Suspect]
     Indication: PERIPHERAL ISCHAEMIA
  5. ROPIVACAINE [Suspect]
     Indication: NERVE BLOCK
     Dosage: 1 ML/KG
     Route: 050
  6. ROPIVACAINE [Suspect]
     Indication: PERIPHERAL ISCHAEMIA
  7. FRESH FROZEN PLASMA [Concomitant]
     Route: 065

REACTIONS (1)
  - Gangrene [Unknown]
